FAERS Safety Report 15438714 (Version 1)
Quarter: 2018Q3

REPORT INFORMATION
  Report Type: Spontaneous
  Country: US (occurrence: US)
  Receive Date: 20180928
  Receipt Date: 20180928
  Transmission Date: 20181010
  Serious: No
  Sender: FDA-Public Use
  Company Number: US-ASTRAZENECA-2018SF10431

PATIENT
  Sex: Male
  Weight: 108.9 kg

DRUGS (2)
  1. METFORMIN [Concomitant]
     Active Substance: METFORMIN HYDROCHLORIDE
     Dates: start: 2017
  2. BYDUREON [Suspect]
     Active Substance: EXENATIDE
     Indication: TYPE 2 DIABETES MELLITUS
     Route: 065
     Dates: start: 2018

REACTIONS (4)
  - Device malfunction [Unknown]
  - Injection site mass [Not Recovered/Not Resolved]
  - Wrong technique in device usage process [Unknown]
  - Injection site pain [Not Recovered/Not Resolved]
